FAERS Safety Report 7959296-1 (Version None)
Quarter: 2011Q4

REPORT INFORMATION
  Report Type: 
  Country: None (occurrence: None)
  Receive Date: 20111206
  Receipt Date: 20111125
  Transmission Date: 20120403
  Serious: Yes (Hospitalization, Other)
  Sender: FDA-Public Use
  Company Number: SE-AMGEN-SWESP2011055024

PATIENT
  Sex: Male
  Weight: 74 kg

DRUGS (4)
  1. NPLATE [Suspect]
     Indication: IDIOPATHIC THROMBOCYTOPENIC PURPURA
     Dosage: 80 MUG, QWK
     Route: 058
     Dates: start: 20110708
  2. NPLATE [Suspect]
     Dosage: 250 MUG, QWK
     Route: 058
     Dates: end: 20110802
  3. NPLATE [Suspect]
     Dosage: 160 MUG, QWK
     Route: 058
     Dates: start: 20110715
  4. NPLATE [Suspect]
     Dosage: 250 MUG, QWK
     Route: 058
     Dates: start: 20110722

REACTIONS (4)
  - PERSONALITY CHANGE [None]
  - CENTRAL NERVOUS SYSTEM LESION [None]
  - ENCEPHALOPATHY [None]
  - PLATELET COUNT INCREASED [None]
